FAERS Safety Report 15156401 (Version 4)
Quarter: 2018Q3

REPORT INFORMATION
  Report Type: Report from Study
  Country: US (occurrence: US)
  Receive Date: 20180717
  Receipt Date: 20180911
  Transmission Date: 20181010
  Serious: Yes (Hospitalization, Other)
  Sender: FDA-Public Use
  Company Number: US-ACTELION-A-US2018-175421

PATIENT
  Age: 78 Year
  Sex: Male
  Weight: 79.82 kg

DRUGS (2)
  1. OPSUMIT [Suspect]
     Active Substance: MACITENTAN
     Indication: PULMONARY ARTERIAL HYPERTENSION
     Dosage: 10 MG, QD
     Route: 048
  2. ADEMPAS [Concomitant]
     Active Substance: RIOCIGUAT
     Dosage: 2.5 MG, TID

REACTIONS (12)
  - Leukaemia [Unknown]
  - Transfusion [Unknown]
  - Nasal dryness [Unknown]
  - Vomiting [Unknown]
  - Dyspnoea exertional [Recovering/Resolving]
  - Haemoglobin decreased [Unknown]
  - Gastrointestinal haemorrhage [Unknown]
  - Abdominal mass [Unknown]
  - Blood creatine increased [Unknown]
  - Blood iron decreased [Unknown]
  - Epistaxis [Unknown]
  - Blood urea increased [Unknown]
